FAERS Safety Report 16939305 (Version 1)
Quarter: 2019Q4

REPORT INFORMATION
  Report Type: Report from Study
  Country: US (occurrence: US)
  Receive Date: 20191021
  Receipt Date: 20191021
  Transmission Date: 20200122
  Serious: Yes (Hospitalization, Other)
  Sender: FDA-Public Use
  Company Number: US-ROCHE-2437786

PATIENT

DRUGS (1)
  1. CAPECITABINE. [Suspect]
     Active Substance: CAPECITABINE
     Indication: ANAL CANCER
     Route: 048

REACTIONS (13)
  - Skin infection [Unknown]
  - Proctalgia [Unknown]
  - Acute coronary syndrome [Unknown]
  - Stomatitis [Unknown]
  - Proctitis [Unknown]
  - Anaemia [Unknown]
  - Diarrhoea [Unknown]
  - Cystitis [Unknown]
  - Soft tissue infection [Unknown]
  - Radiation skin injury [Unknown]
  - Nausea [Unknown]
  - Palmar-plantar erythrodysaesthesia syndrome [Unknown]
  - Neutropenia [Unknown]
